FAERS Safety Report 4423186-1 (Version None)
Quarter: 2004Q3

REPORT INFORMATION
  Report Type: 
  Country: None (occurrence: None)
  Receive Date: 20040805
  Receipt Date: 20040720
  Transmission Date: 20050211
  Serious: Yes (Hospitalization)
  Sender: FDA-Public Use
  Company Number: 192783

PATIENT
  Age: 57 Year
  Sex: Male
  Weight: 90.2658 kg

DRUGS (4)
  1. AVONEX [Suspect]
     Indication: MULTIPLE SCLEROSIS
     Dates: end: 20040201
  2. AVONEX [Suspect]
     Indication: MULTIPLE SCLEROSIS
     Dates: start: 20040101
  3. BACLOFEN [Concomitant]
  4. PRILOSEC [Concomitant]

REACTIONS (2)
  - DEEP VEIN THROMBOSIS [None]
  - GASTRITIS BACTERIAL [None]
